FAERS Safety Report 23181387 (Version 1)
Quarter: 2023Q4

REPORT INFORMATION
  Report Type: Spontaneous
  Country: PA (occurrence: PA)
  Receive Date: 20231114
  Receipt Date: 20231114
  Transmission Date: 20240109
  Serious: Yes (Death)
  Sender: FDA-Public Use
  Company Number: PA-002147023-NVSC2023PA202276

PATIENT
  Age: 36 Year
  Sex: Female

DRUGS (1)
  1. KISQALI [Suspect]
     Active Substance: RIBOCICLIB
     Indication: Product used for unknown indication
     Route: 065

REACTIONS (4)
  - Hepatic failure [Fatal]
  - Hypertransaminasaemia [Fatal]
  - Hepatomegaly [Fatal]
  - Abdominal pain [Unknown]
